FAERS Safety Report 9340634 (Version 1)
Quarter: 2013Q2

REPORT INFORMATION
  Report Type: Report from Study
  Country: US (occurrence: US)
  Receive Date: 20130610
  Receipt Date: 20130610
  Transmission Date: 20140414
  Serious: Yes (Hospitalization)
  Sender: FDA-Public Use
  Company Number: US-ABBOTT-13P-163-1098527-00

PATIENT
  Age: 26 Year
  Sex: Male

DRUGS (2)
  1. HUMIRA [Suspect]
     Indication: CROHN^S DISEASE
  2. HUMIRA [Suspect]
     Dates: start: 20130204

REACTIONS (3)
  - Crohn^s disease [Not Recovered/Not Resolved]
  - Dysuria [Unknown]
  - Cystitis noninfective [Unknown]
